FAERS Safety Report 6492315-0 (Version None)
Quarter: 2009Q4

REPORT INFORMATION
  Report Type: 
  Country: None (occurrence: None)
  Receive Date: 20091214
  Receipt Date: 20091112
  Transmission Date: 20100525
  Serious: No
  Sender: FDA-Public Use
  Company Number: US-BAYER-200939510NA

PATIENT
  Sex: Female

DRUGS (2)
  1. AVELOX [Suspect]
     Indication: PNEUMONIA
  2. AZILECT [Concomitant]
     Indication: PARKINSON'S DISEASE

REACTIONS (1)
  - PNEUMONIA [None]
